FAERS Safety Report 14746640 (Version 1)
Quarter: 2018Q2

REPORT INFORMATION
  Report Type: Report from Study
  Country: NL (occurrence: NL)
  Receive Date: 20180411
  Receipt Date: 20180411
  Transmission Date: 20180711
  Serious: Yes (Hospitalization, Other)
  Sender: FDA-Public Use
  Company Number: PHHO2017NL011221

PATIENT
  Age: 62 Year
  Sex: Female
  Weight: 70 kg

DRUGS (7)
  1. CARBOPLATIN. [Suspect]
     Active Substance: CARBOPLATIN
     Dosage: 160 MG, UNK
     Route: 042
     Dates: end: 20170817
  2. PACLITAXEL. [Suspect]
     Active Substance: PACLITAXEL
     Indication: OVARIAN CANCER
     Dosage: 55 MG, QW
     Route: 042
     Dates: start: 20170623, end: 20170720
  3. PACLITAXEL. [Suspect]
     Active Substance: PACLITAXEL
     Dosage: 55 MG, QW
     Route: 042
     Dates: end: 20170817
  4. PAZOPANIB [Suspect]
     Active Substance: PAZOPANIB
     Indication: OVARIAN CANCER
     Dosage: 400 MG, QD
     Route: 048
     Dates: start: 20170624, end: 20170726
  5. ACETAMINOPHEN. [Concomitant]
     Active Substance: ACETAMINOPHEN
     Indication: PRODUCT USED FOR UNKNOWN INDICATION
     Route: 065
  6. PAZOPANIB [Suspect]
     Active Substance: PAZOPANIB
     Dosage: 200 MEQ, UNK
     Route: 048
     Dates: end: 20170823
  7. CARBOPLATIN. [Suspect]
     Active Substance: CARBOPLATIN
     Indication: OVARIAN CANCER
     Dosage: 190 MG, QW
     Route: 042
     Dates: start: 20170623, end: 20170720

REACTIONS (5)
  - Aspartate aminotransferase increased [Recovered/Resolved]
  - Alanine aminotransferase increased [Recovered/Resolved]
  - Thrombocytopenia [Recovered/Resolved]
  - Anaemia [Recovered/Resolved]
  - Gamma-glutamyltransferase increased [Recovered/Resolved]

NARRATIVE: CASE EVENT DATE: 20170727
